FAERS Safety Report 8873489 (Version 1)
Quarter: 2012Q4

REPORT INFORMATION
  Report Type: 
  Country: US (occurrence: US)
  Receive Date: 20121026
  Receipt Date: 20121026
  Transmission Date: 20130627
  Serious: No
  Sender: FDA-Public Use
  Company Number: US-AMGEN-USASP2012050243

PATIENT
  Age: 70 Year
  Sex: Female
  Weight: 41.72 kg

DRUGS (10)
  1. ENBREL [Suspect]
     Indication: PRODUCT USED FOR UNKNOWN INDICATION
     Dosage: 50 mg, qwk
     Route: 058
     Dates: start: 199812
  2. LOSARTAN [Concomitant]
     Dosage: 25 mg, UNK
  3. FERROUS SULPHATE                   /00023503/ [Concomitant]
     Dosage: UNK
  4. ZYRTEC [Concomitant]
     Dosage: 5-120
  5. COSAMIN DS                         /06404301/ [Concomitant]
     Dosage: 500-400
  6. FOLIC ACID [Concomitant]
     Dosage: 1 mg, UNK
  7. METHOTREXATE [Concomitant]
     Dosage: 2.5 mg, UNK
  8. VITAMIN D /00107901/ [Concomitant]
     Dosage: 1000 unit, UNK
  9. OSCAL                              /00514701/ [Concomitant]
     Dosage: 500 UNK, UNK
  10. POTASSIUM CHLORIDE [Concomitant]
     Dosage: 10 mEq, CR UNK

REACTIONS (1)
  - Rash [Unknown]
